FAERS Safety Report 9592862 (Version 1)
Quarter: 2013Q4

REPORT INFORMATION
  Report Type: Report from Study
  Country: JP (occurrence: JP)
  Receive Date: 20131004
  Receipt Date: 20131004
  Transmission Date: 20140711
  Serious: Yes (Hospitalization, Other)
  Sender: FDA-Public Use
  Company Number: JP-NOVOPROD-388501

PATIENT
  Age: 52 Year
  Sex: Female
  Weight: 96 kg

DRUGS (13)
  1. LIRAGLUTIDE FLEXPEN [Suspect]
     Indication: TYPE 2 DIABETES MELLITUS
     Dosage: 0.6 MG, QD
     Route: 058
     Dates: start: 20121023
  2. LIRAGLUTIDE FLEXPEN [Suspect]
     Dosage: 0.9 MG, QD
     Route: 058
     Dates: start: 20121126
  3. METGLUCO [Concomitant]
     Indication: TYPE 2 DIABETES MELLITUS
     Dosage: 1000 MG, QD (PRETREATMENT DRUG)
     Route: 048
     Dates: start: 20110525
  4. AMARYL [Concomitant]
     Indication: TYPE 2 DIABETES MELLITUS
     Dosage: 2 MG, QD (PRETREATMENT DRUG)
     Route: 048
     Dates: start: 20110525
  5. LIPIDIL [Concomitant]
     Route: 048
  6. ZYRTEC [Concomitant]
     Route: 048
  7. AMLODIPINE BESILATE [Concomitant]
     Route: 048
  8. DIOVAN [Concomitant]
     Route: 048
  9. ALDACTONE A [Concomitant]
     Route: 048
  10. THYRADIN S [Concomitant]
     Route: 048
  11. METHYCOBAL [Concomitant]
     Route: 048
  12. JUVELA N [Concomitant]
     Route: 048
  13. ZETIA [Concomitant]
     Route: 048

REACTIONS (1)
  - Lung adenocarcinoma metastatic [Not Recovered/Not Resolved]
